FAERS Safety Report 15635909 (Version 1)
Quarter: 2018Q4

REPORT INFORMATION
  Report Type: Spontaneous
  Country: US (occurrence: US)
  Receive Date: 20181120
  Receipt Date: 20181120
  Transmission Date: 20190205
  Serious: No
  Sender: FDA-Public Use
  Company Number: US-JNJFOC-20181101907

PATIENT
  Sex: Female

DRUGS (2)
  1. MENS ROGAINE EXTRA STRENGTH UNSCENTED [Suspect]
     Active Substance: MINOXIDIL
     Route: 061
  2. MENS ROGAINE EXTRA STRENGTH UNSCENTED [Suspect]
     Active Substance: MINOXIDIL
     Indication: ALOPECIA
     Dosage: HALF A CAP-FULL ONCE A DAY-TWICE A DAY
     Route: 061

REACTIONS (8)
  - Product use in unapproved indication [Unknown]
  - Alopecia [Recovered/Resolved]
  - Hair growth abnormal [Recovered/Resolved]
  - Expired product administered [Unknown]
  - Product use issue [Unknown]
  - Hair disorder [Recovered/Resolved]
  - Off label use [Unknown]
  - Overdose [Unknown]
